FAERS Safety Report 9376959 (Version 1)
Quarter: 2013Q3

REPORT INFORMATION
  Report Type: Spontaneous
  Country: NL (occurrence: NL)
  Receive Date: 20130701
  Receipt Date: 20130701
  Transmission Date: 20140515
  Serious: Yes (Disabling)
  Sender: FDA-Public Use
  Company Number: NL-009507513-1306NLD012608

PATIENT
  Age: 61 Year
  Sex: Male

DRUGS (2)
  1. SIMVASTATIN [Suspect]
     Indication: HYPERCHOLESTEROLAEMIA
     Dosage: 40 MG, QD
     Dates: start: 20130320, end: 20130510
  2. TAMSULOSIN HYDROCHLORIDE [Interacting]
     Indication: BENIGN PROSTATIC HYPERPLASIA
     Dosage: 0.4 MG, QD
     Dates: start: 20120801

REACTIONS (2)
  - Trismus [Not Recovered/Not Resolved]
  - Drug interaction [Not Recovered/Not Resolved]
